FAERS Safety Report 10162078 (Version 1)
Quarter: 2014Q2

REPORT INFORMATION
  Report Type: Spontaneous
  Country: IT (occurrence: IT)
  Receive Date: 20140509
  Receipt Date: 20140509
  Transmission Date: 20141212
  Serious: Yes (Hospitalization)
  Sender: FDA-Public Use
  Company Number: IT-SA-2014SA055910

PATIENT
  Age: 86 Year
  Sex: Female

DRUGS (11)
  1. AMARYL [Suspect]
     Indication: DIABETES MELLITUS
     Route: 048
     Dates: start: 20140101, end: 20140304
  2. HALCION [Suspect]
     Indication: ANXIETY
     Route: 048
     Dates: start: 20140101, end: 20140304
  3. LYRICA [Suspect]
     Indication: NEUROPATHY PERIPHERAL
     Route: 048
     Dates: start: 20140101, end: 20140304
  4. PRAMIPEXOLE [Concomitant]
     Route: 048
  5. CORDARONE [Concomitant]
     Route: 048
  6. GALVUS [Concomitant]
     Route: 048
  7. LORTAAN [Concomitant]
     Route: 048
  8. DUOPLAVIN [Concomitant]
     Route: 048
  9. PEPTAZOL [Concomitant]
     Route: 048
  10. LASIX [Concomitant]
     Route: 048
  11. CONGESCOR [Concomitant]
     Route: 048

REACTIONS (5)
  - Hyperpyrexia [Unknown]
  - Jaundice [Unknown]
  - Sopor [Unknown]
  - Hypoglycaemia [Unknown]
  - Nasopharyngitis [Unknown]
